FAERS Safety Report 5713227-3 (Version None)
Quarter: 2008Q2

REPORT INFORMATION
  Report Type: 
  Country: None (occurrence: None)
  Receive Date: 20080422
  Receipt Date: 19980916
  Transmission Date: 20081010
  Serious: Yes (Death)
  Sender: FDA-Public Use
  Company Number: US-ROCHE-105975

PATIENT
  Sex: Female
  Weight: 70.3 kg

DRUGS (17)
  1. TORSEMIDE [Suspect]
     Route: 048
     Dates: start: 19970718
  2. ACETAMINOPHEN W/ CODEINE [Concomitant]
     Dates: start: 19920730
  3. ACETAMINOPHEN W/ CODEINE [Concomitant]
     Dates: start: 19920730
  4. ATENOLOL [Concomitant]
     Dates: start: 19970910
  5. BACITRACIN TOPICAL OINTMENT [Concomitant]
     Dates: start: 19941220
  6. BENAZEPRIL HYDROCHLORIDE [Concomitant]
     Dates: start: 19970604
  7. DIGOXIN [Concomitant]
     Dates: start: 19920608
  8. ENTERAL NUTRITION [Concomitant]
     Dosage: REPORTED AS ENTERAL HI FIBER
     Dates: start: 19970910
  9. ENTERAL ALIMENTATION [Concomitant]
     Dates: start: 19970720
  10. HUMULIN LENTE INSULIN [Concomitant]
     Dates: start: 19920608
  11. ISOSORBIDE DINITRATE [Concomitant]
     Route: 048
     Dates: start: 19970720
  12. POTASSIUM CHLORIDE [Concomitant]
     Dates: start: 19970720
  13. VITAMIN CAP [Concomitant]
     Dates: start: 19970816
  14. SODIUM CHLORIDE [Concomitant]
     Dates: start: 19980115
  15. NIZATIDINE [Concomitant]
     Dates: start: 19950608
  16. OMEPRAZOLE [Concomitant]
     Dates: start: 19941220
  17. WARFARIN SODIUM [Concomitant]
     Dates: start: 19970604

REACTIONS (1)
  - DEATH [None]
